FAERS Safety Report 6239448-1 (Version None)
Quarter: 2009Q2

REPORT INFORMATION
  Report Type: 
  Country: None (occurrence: None)
  Receive Date: 20090618
  Receipt Date: 20090618
  Transmission Date: 20091009
  Serious: No
  Sender: FDA-Public Use
  Company Number: None

PATIENT
  Age: 49 Year
  Sex: Male
  Weight: 104.3273 kg

DRUGS (1)
  1. ZICAM [Suspect]
     Indication: NASOPHARYNGITIS
     Dosage: NASAL  (AS NEEDED)
     Route: 045
     Dates: start: 20081101, end: 20090201

REACTIONS (2)
  - AGEUSIA [None]
  - ANOSMIA [None]
